FAERS Safety Report 18038477 (Version 1)
Quarter: 2020Q3

REPORT INFORMATION
  Report Type: Report from Study
  Country: US (occurrence: US)
  Receive Date: 20200717
  Receipt Date: 20200717
  Transmission Date: 20201103
  Serious: Yes (Hospitalization)
  Sender: FDA-Public Use
  Company Number: US-VERTEX PHARMACEUTICALS-2020-014780

PATIENT
  Age: 34 Year
  Sex: Female

DRUGS (2)
  1. BOOST PLUS [Concomitant]
     Active Substance: DIETARY SUPPLEMENT
  2. TRIKAFTA [Suspect]
     Active Substance: ELEXACAFTOR\IVACAFTOR\TEZACAFTOR
     Indication: CYSTIC FIBROSIS
     Dosage: (200MG ELEXACAFTOR/100MG TEZACAFTOR/150MG IVACAFTOR) QAM(150MG IVACAFTOR) QPM
     Route: 048
     Dates: start: 20200221

REACTIONS (2)
  - Constipation [Not Recovered/Not Resolved]
  - Rash [Not Recovered/Not Resolved]

NARRATIVE: CASE EVENT DATE: 20200626
